FAERS Safety Report 9005193 (Version 1)
Quarter: 2013Q1

REPORT INFORMATION
  Report Type: Spontaneous
  Country: GB (occurrence: GB)
  Receive Date: 20130108
  Receipt Date: 20130108
  Transmission Date: 20140127
  Serious: Yes (Other)
  Sender: FDA-Public Use
  Company Number: GB-ASTRAZENECA-2013SE00140

PATIENT
  Age: 82 Year
  Sex: Male

DRUGS (7)
  1. BRILIQUE [Suspect]
     Indication: ACUTE MYOCARDIAL INFARCTION
     Route: 048
     Dates: start: 20121210
  2. ATROPINE [Concomitant]
     Route: 042
  3. DALTEPARIN [Concomitant]
     Dosage: 10000
     Route: 058
  4. GLYCERYL TRINITRATE [Concomitant]
     Route: 058
  5. MAXOLON [Concomitant]
     Route: 042
  6. MORPHINE [Concomitant]
     Route: 042
  7. OMEPRAZOLE [Concomitant]
     Route: 042

REACTIONS (2)
  - Agitation [Unknown]
  - Confusional state [Unknown]
